FAERS Safety Report 5658281-2 (Version None)
Quarter: 2008Q1

REPORT INFORMATION
  Report Type: 
  Country: None (occurrence: None)
  Receive Date: 20080310
  Receipt Date: 20070314
  Transmission Date: 20080703
  Serious: Yes (Other)
  Sender: FDA-Public Use
  Company Number: US-BAYER-200710280BCC

PATIENT
  Age: 72 Year
  Sex: Female
  Weight: 69 kg

DRUGS (5)
  1. ALEVE [Suspect]
     Indication: BACK PAIN
     Dosage: TOTAL DAILY DOSE: 440 MG  UNIT DOSE: 220 MG
     Route: 048
     Dates: start: 20070122, end: 20070124
  2. ATENOLOL [Concomitant]
  3. FOSINOPRIL SODIUM [Concomitant]
  4. VYTORIN [Concomitant]
  5. ALLOPURINOL [Concomitant]

REACTIONS (2)
  - BLOOD PRESSURE INCREASED [None]
  - HYPERTENSION [None]
